FAERS Safety Report 9408615 (Version 1)
Quarter: 2013Q3

REPORT INFORMATION
  Report Type: Spontaneous
  Country: US (occurrence: US)
  Receive Date: 20130718
  Receipt Date: 20130718
  Transmission Date: 20140515
  Serious: No
  Sender: FDA-Public Use
  Company Number: US-PFIZER INC-2013210883

PATIENT
  Sex: Female

DRUGS (2)
  1. GABAPENTIN [Suspect]
     Indication: FIBROMYALGIA
     Dosage: 100 MG, UNK
  2. MELOXICAM [Concomitant]
     Indication: ARTHRALGIA
     Dosage: 15 MG, UNK

REACTIONS (1)
  - Drug ineffective [Unknown]
